FAERS Safety Report 8829546 (Version 1)
Quarter: 2012Q4

REPORT INFORMATION
  Report Type: 
  Country: US (occurrence: US)
  Receive Date: 20121008
  Receipt Date: 20121008
  Transmission Date: 20130627
  Serious: Yes (Other)
  Sender: FDA-Public Use
  Company Number: US-PFIZER INC-2012247807

PATIENT
  Age: 60 Year
  Sex: Male

DRUGS (2)
  1. LYRICA [Suspect]
     Indication: FIBROMYALGIA
     Dosage: 150 mg, 3x/day
     Dates: start: 2011, end: 201201
  2. LYRICA [Suspect]
     Dosage: 150 mg, 3x/day
     Dates: start: 201205, end: 2012

REACTIONS (1)
  - Suicidal ideation [Recovered/Resolved]
